FAERS Safety Report 8196754-1 (Version None)
Quarter: 2012Q1

REPORT INFORMATION
  Report Type: 
  Country: None (occurrence: None)
  Receive Date: 20120309
  Receipt Date: 20120302
  Transmission Date: 20120608
  Serious: Yes (Hospitalization, Other)
  Sender: FDA-Public Use
  Company Number: 2012SP000732

PATIENT
  Age: 20 Year
  Sex: Male

DRUGS (1)
  1. LATUDA [Suspect]
     Indication: SCHIZOPHRENIA
     Route: 048
     Dates: start: 20120221, end: 20120222

REACTIONS (3)
  - HYPERSENSITIVITY [None]
  - SCHIZOPHRENIA [None]
  - DEHYDRATION [None]
